FAERS Safety Report 5245002-0 (Version None)
Quarter: 2007Q1

REPORT INFORMATION
  Report Type: 
  Country: None (occurrence: None)
  Receive Date: 20070221
  Receipt Date: 20070221
  Transmission Date: 20070707
  Serious: Yes (Other)
  Sender: FDA-Public Use
  Company Number: None

PATIENT
  Age: 63 Year
  Sex: Female
  Weight: 52 kg

DRUGS (13)
  1. MULTIVITAMIN [Suspect]
     Indication: NAUSEA
     Dosage: 10 ML PER TPN BAG DAILY IV
     Route: 042
     Dates: start: 20061213, end: 20061213
  2. MULTIVITAMIN [Suspect]
     Indication: OVARIAN CANCER
     Dosage: 10 ML PER TPN BAG DAILY IV
     Route: 042
     Dates: start: 20061213, end: 20061213
  3. MULTIVITAMIN [Suspect]
     Indication: VITAMIN SUPPLEMENTATION
     Dosage: 10 ML PER TPN BAG DAILY IV
     Route: 042
     Dates: start: 20061213, end: 20061213
  4. INTRALIPID 30% [Suspect]
     Indication: NAUSEA
     Dosage: 30% OF NPC PER TPN DAILY IV BAG
     Route: 042
     Dates: start: 20061213, end: 20061213
  5. INTRALIPID 30% [Suspect]
     Indication: OVARIAN CANCER
     Dosage: 30% OF NPC PER TPN DAILY IV BAG
     Route: 042
     Dates: start: 20061213, end: 20061213
  6. INTRALIPID 30% [Suspect]
     Indication: VOMITING
     Dosage: 30% OF NPC PER TPN DAILY IV BAG
     Route: 042
     Dates: start: 20061213, end: 20061213
  7. CELEXA [Concomitant]
  8. DIPHENHYDRAMINE HCL [Concomitant]
  9. LORAZEPAM [Concomitant]
  10. MECLIZINE [Concomitant]
  11. ONDANSETRON [Concomitant]
  12. PANTOPRAZOLE SODIUM [Concomitant]
  13. PROCHLORPERAZINE [Concomitant]

REACTIONS (8)
  - ADVERSE DRUG REACTION [None]
  - BLOOD PRESSURE INCREASED [None]
  - CHEST PAIN [None]
  - DYSPNOEA [None]
  - FAT EMBOLISM [None]
  - MYOCARDIAL INFARCTION [None]
  - PARAESTHESIA [None]
  - RESPIRATORY RATE INCREASED [None]
